FAERS Safety Report 8093213-1 (Version None)
Quarter: 2012Q1

REPORT INFORMATION
  Report Type: 
  Country: None (occurrence: None)
  Receive Date: 20120128
  Receipt Date: 20110901
  Transmission Date: 20120608
  Serious: No
  Sender: FDA-Public Use
  Company Number: US-ABBOTT-11P-163-0850722-00

PATIENT
  Sex: Male

DRUGS (3)
  1. EPIVIR-HBV [Concomitant]
     Indication: HEPATITIS B
  2. HUMIRA [Suspect]
     Indication: CROHN'S DISEASE
     Route: 058
     Dates: start: 20110101
  3. HEPSERA [Concomitant]
     Indication: HEPATITIS B

REACTIONS (1)
  - SKIN DISCOLOURATION [None]
